FAERS Safety Report 7531360-0 (Version None)
Quarter: 2011Q2

REPORT INFORMATION
  Report Type: 
  Country: None (occurrence: None)
  Receive Date: 20110608
  Receipt Date: 20110525
  Transmission Date: 20111010
  Serious: Yes (Other)
  Sender: FDA-Public Use
  Company Number: PHHY2011US46602

PATIENT
  Age: 56 Year
  Sex: Female

DRUGS (6)
  1. CALCIUM CARBONATE [Concomitant]
     Dosage: UNK
  2. PREVACID [Concomitant]
     Dosage: UNK
  3. VITAMIN D [Concomitant]
     Dosage: UNK
  4. CRESTOR [Concomitant]
  5. SYNTHROID [Concomitant]
     Dosage: UNK
  6. DIOVAN [Suspect]
     Dosage: 40 MG, QD
     Dates: start: 20110407

REACTIONS (6)
  - NASAL CONGESTION [None]
  - EYE HAEMORRHAGE [None]
  - UPPER-AIRWAY COUGH SYNDROME [None]
  - OCULAR HYPERAEMIA [None]
  - EYE PAIN [None]
  - OCULAR ICTERUS [None]
